FAERS Safety Report 24084909 (Version 1)
Quarter: 2024Q3

REPORT INFORMATION
  Report Type: Spontaneous
  Country: CN (occurrence: CN)
  Receive Date: 20240712
  Receipt Date: 20240712
  Transmission Date: 20241017
  Serious: Yes (Life-Threatening)
  Sender: EAGLE
  Company Number: PA2024CN000082

PATIENT
  Age: 35 Year
  Sex: Male

DRUGS (2)
  1. REMIMAZOLAM [Suspect]
     Active Substance: REMIMAZOLAM
     Indication: General anaesthesia
     Dosage: 10 MILLIGRAM
     Route: 042
     Dates: start: 20240626, end: 20240626
  2. ALFENTANIL HYDROCHLORIDE [Suspect]
     Active Substance: ALFENTANIL HYDROCHLORIDE
     Indication: Analgesic therapy
     Dosage: 0.5 MILLIGRAM
     Route: 042
     Dates: start: 20240626, end: 20240626

REACTIONS (4)
  - Chest wall rigidity [Recovered/Resolved]
  - Cough [Recovered/Resolved]
  - Erythema [Recovering/Resolving]
  - Oxygen saturation decreased [Recovered/Resolved]

NARRATIVE: CASE EVENT DATE: 20240626
